FAERS Safety Report 4737926-5 (Version None)
Quarter: 2005Q3

REPORT INFORMATION
  Report Type: 
  Country: None (occurrence: None)
  Receive Date: 20050805
  Receipt Date: 20050805
  Transmission Date: 20060218
  Serious: Yes (Hospitalization)
  Sender: FDA-Public Use
  Company Number: None

PATIENT
  Age: 83 Year
  Sex: Male
  Weight: 87.5442 kg

DRUGS (10)
  1. INTEGRILIN [Suspect]
     Indication: ANTIPLATELET THERAPY
     Dosage: 2(7.9ML BOLUSES) 14 ML/HR
     Route: 040
     Dates: start: 20010801, end: 20050201
  2. INTEGRILIN [Suspect]
  3. SYNTHROID [Concomitant]
  4. ALLOPURINOL [Concomitant]
  5. ZOCOR [Concomitant]
  6. TENORMIN [Concomitant]
  7. VITAMIN E [Concomitant]
  8. ASCORBIC ACID [Concomitant]
  9. TAMSULOSIN [Concomitant]
  10. ASPIRIN [Concomitant]

REACTIONS (3)
  - CARDIAC ENZYMES INCREASED [None]
  - CHEST PAIN [None]
  - POST PROCEDURAL COMPLICATION [None]
